FAERS Safety Report 9859274 (Version 2)
Quarter: 2014Q2

REPORT INFORMATION
  Report Type: Spontaneous
  Country: US (occurrence: None)
  Receive Date: 20140129
  Receipt Date: 20140521
  Transmission Date: 20141212
  Serious: Yes (Hospitalization, Other)
  Sender: FDA-Public Use
  Company Number: 2014-US-000663

PATIENT
  Age: 59 Year
  Sex: Female

DRUGS (12)
  1. XYREM [Suspect]
     Indication: SLEEP DISORDER
     Route: 048
     Dates: start: 200405, end: 2004
  2. DETROL [Concomitant]
  3. PREVACID (LANSOPRAZOLE) [Concomitant]
  4. LEXAPRO (ESCITALOPRAM OXALATE) [Concomitant]
  5. CARDIZEM CD [Concomitant]
  6. SYNTHROID (LEVOTHYROXINE SODIUM) [Concomitant]
  7. IRON [Concomitant]
  8. COUMADIN (WARFARIN SODIUM) [Concomitant]
  9. PROTONIX [Concomitant]
  10. VITAMIN B12 [Concomitant]
  11. WARFARIN SODIUM [Concomitant]
  12. PROVIGIL (MODAFINIL) [Suspect]
     Indication: PRODUCT USED FOR UNKNOWN INDICATION
     Dates: end: 200510

REACTIONS (14)
  - Vocal cord neoplasm [None]
  - Laryngectomy [None]
  - Gastric bypass [None]
  - Vitamin B12 decreased [None]
  - Blood 25-hydroxycholecalciferol decreased [None]
  - Blood calcium decreased [None]
  - Osteoarthritis [None]
  - Knee arthroplasty [None]
  - Vocal cord paralysis [None]
  - Adrenal insufficiency [None]
  - Dehydration [None]
  - Infrequent bowel movements [None]
  - Malaise [None]
  - Weight decreased [None]
